FAERS Safety Report 12015007 (Version 1)
Quarter: 2016Q1

REPORT INFORMATION
  Report Type: Spontaneous
  Country: JP (occurrence: JP)
  Receive Date: 20160205
  Receipt Date: 20160205
  Transmission Date: 20160526
  Serious: Yes (Hospitalization)
  Sender: FDA-Public Use
  Company Number: JP-BAUSCH-BL-2016-003082

PATIENT
  Age: 55 Year
  Sex: Female

DRUGS (5)
  1. DOCETAXEL. [Suspect]
     Active Substance: DOCETAXEL
     Indication: SKIN CANCER METASTATIC
     Route: 065
     Dates: start: 201406
  2. PACLITAXEL. [Concomitant]
     Active Substance: PACLITAXEL
     Indication: PRODUCT USED FOR UNKNOWN INDICATION
     Dates: end: 201405
  3. CETUXIMAB [Concomitant]
     Active Substance: CETUXIMAB
     Indication: PRODUCT USED FOR UNKNOWN INDICATION
     Dates: end: 201405
  4. CISPLATIN. [Suspect]
     Active Substance: CISPLATIN
     Indication: SKIN CANCER METASTATIC
     Route: 065
     Dates: start: 201406
  5. FLUOROURACIL. [Suspect]
     Active Substance: FLUOROURACIL
     Indication: SKIN CANCER METASTATIC
     Route: 065
     Dates: start: 201406

REACTIONS (3)
  - Gastroptosis [Recovering/Resolving]
  - Duodenal stenosis [Recovering/Resolving]
  - Superior mesenteric artery syndrome [Recovering/Resolving]

NARRATIVE: CASE EVENT DATE: 2014
